FAERS Safety Report 4408766-1 (Version None)
Quarter: 2004Q3

REPORT INFORMATION
  Report Type: 
  Country: None (occurrence: None)
  Receive Date: 20040727
  Receipt Date: 20040624
  Transmission Date: 20050211
  Serious: Yes (Hospitalization)
  Sender: FDA-Public Use
  Company Number: US-AMGEN-US081446

PATIENT
  Sex: Female

DRUGS (10)
  1. SENSIPAR [Suspect]
     Indication: HYPERPARATHYROIDISM SECONDARY
     Route: 048
     Dates: start: 20031230, end: 20040615
  2. IBUPROFEN [Suspect]
  3. EXCEDRIN (MIGRAINE) [Suspect]
  4. FERRLECIT FOR INJECTION [Concomitant]
     Route: 042
  5. ZEMPLAR (ABBOTT LABORATORIES) [Concomitant]
  6. ADALAT [Concomitant]
  7. CLONIDINE HCL [Concomitant]
  8. LABETALOL HCL [Concomitant]
  9. LOSARTAN POTASSIUM [Concomitant]
  10. RENAGEL [Concomitant]

REACTIONS (6)
  - DRUG ABUSER [None]
  - DUODENAL ULCER [None]
  - GASTROINTESTINAL HAEMORRHAGE [None]
  - MALLORY-WEISS SYNDROME [None]
  - NAUSEA [None]
  - VOMITING [None]
